FAERS Safety Report 8756722 (Version 1)
Quarter: 2012Q4

REPORT INFORMATION
  Report Type: 
  Country: BR (occurrence: BR)
  Receive Date: 20120828
  Receipt Date: 20120828
  Transmission Date: 20130627
  Serious: Yes (Other)
  Sender: FDA-Public Use
  Company Number: PHHY2012BR071905

PATIENT
  Age: 70 Year
  Sex: Male

DRUGS (9)
  1. FORMOTEROL [Suspect]
     Dosage: UNK UKN, UNK
  2. INFLUENZA VIRUS VACCINE NOS [Suspect]
     Indication: IMMUNISATION
     Dosage: 1 DF
  3. PNEUMOCOCCAL VACCINE POLYVALENT NOS [Suspect]
     Indication: IMMUNISATION
  4. LOSARTAN [Concomitant]
     Dosage: UNK UKN, UNK
  5. GLIMEPIRIDE [Concomitant]
     Dosage: UNK UKN, UNK
  6. METFORMIN [Concomitant]
     Dosage: UNK UKN, UNK
  7. FLUTICASONE W/SALMETEROL [Concomitant]
     Dosage: 1 DF, BID
  8. CORTICOSTEROID NOS [Concomitant]
     Dosage: UNK UKN, UNK
  9. TIOTROPIUM [Concomitant]
     Dosage: 2.5 ug, QD

REACTIONS (9)
  - Chronic obstructive pulmonary disease [Recovering/Resolving]
  - Dyspnoea [Unknown]
  - Dysphonia [Unknown]
  - Hypoventilation [Unknown]
  - Pneumonia bacterial [Recovered/Resolved]
  - Productive cough [Recovered/Resolved]
  - Pyrexia [Recovered/Resolved]
  - Infective exacerbation of chronic obstructive airways disease [Unknown]
  - Oral candidiasis [Unknown]
